FAERS Safety Report 9544123 (Version 2)
Quarter: 2013Q3

REPORT INFORMATION
  Report Type: Spontaneous
  Country: FR (occurrence: FR)
  Receive Date: 20130923
  Receipt Date: 20130923
  Transmission Date: 20140515
  Serious: Yes (Death, Life-Threatening)
  Sender: FDA-Public Use
  Company Number: FR-SANOFI-AVENTIS-POMP-1003198

PATIENT
  Sex: Male
  Weight: 6.2 kg

DRUGS (3)
  1. MYOZYME [Suspect]
     Indication: GLYCOGEN STORAGE DISEASE TYPE II
     Dosage: UNK
     Route: 042
     Dates: start: 20130305, end: 20130727
  2. PROPRANOLOL [Concomitant]
     Indication: ARRHYTHMIA
     Dosage: DOSE:3 MILLILITRE(S)/KILOGRAM
     Dates: start: 20130301, end: 20130731
  3. LASILIX [Concomitant]
     Indication: CARDIOMYOPATHY
     Dates: start: 20130301, end: 20130731

REACTIONS (3)
  - Obstructive airways disorder [Fatal]
  - Acute respiratory failure [Unknown]
  - Death [Fatal]
